FAERS Safety Report 7089477-3 (Version None)
Quarter: 2010Q4

REPORT INFORMATION
  Report Type: 
  Country: None (occurrence: None)
  Receive Date: 20101029
  Receipt Date: 20101013
  Transmission Date: 20110411
  Serious: Yes (Congenital Anomaly, Other)
  Sender: FDA-Public Use
  Company Number: LTI2010A00222

PATIENT
  Age: 13 Week
  Sex: Female

DRUGS (4)
  1. COMPETACT (PIOGLITAZONE HYDROCHLORDIDE, METFORMIN HYDROCHLORIDE) [Suspect]
     Indication: TYPE 2 DIABETES MELLITUS
     Dosage: TRANSPLACENTAL
     Route: 064
     Dates: end: 20101019
  2. JANUVIA [Suspect]
     Indication: TYPE 2 DIABETES MELLITUS
     Dosage: TRANSPLACENTAL
     Route: 064
     Dates: end: 20091019
  3. INSULATARD NPH HUMAN [Concomitant]
  4. NOVOLOG [Concomitant]

REACTIONS (4)
  - ABORTION INDUCED [None]
  - MATERNAL DRUGS AFFECTING FOETUS [None]
  - NEURAL TUBE DEFECT [None]
  - SKULL MALFORMATION [None]
